FAERS Safety Report 11440874 (Version 1)
Quarter: 2015Q3

REPORT INFORMATION
  Report Type: Spontaneous
  Country: US (occurrence: US)
  Receive Date: 20150821
  Receipt Date: 20150821
  Transmission Date: 20151125
  Serious: Yes (Other)
  Sender: FDA-Public Use
  Company Number: US-ELI_LILLY_AND_COMPANY-US200710007497

PATIENT
  Sex: Male

DRUGS (4)
  1. CYMBALTA [Suspect]
     Active Substance: DULOXETINE HYDROCHLORIDE
     Dosage: 60 MG, UNK
     Route: 048
  2. CLONAPIN [Concomitant]
     Active Substance: CLONAZEPAM
     Dosage: 2 MG, 3/D
  3. VISTARIL [Concomitant]
     Active Substance: HYDROXYZINE PAMOATE
     Dosage: UNK, 2/D
  4. RISPERDAL [Concomitant]
     Active Substance: RISPERIDONE
     Dosage: 1 D/F, 3/D

REACTIONS (2)
  - Fall [Unknown]
  - Seizure [Unknown]
